FAERS Safety Report 6759251-3 (Version None)
Quarter: 2010Q2

REPORT INFORMATION
  Report Type: 
  Country: None (occurrence: None)
  Receive Date: 20100607
  Receipt Date: 20100601
  Transmission Date: 20101027
  Serious: Yes (Hospitalization)
  Sender: FDA-Public Use
  Company Number: CZ-PFIZER INC-2006085287

PATIENT
  Age: 52 Year
  Sex: Female
  Weight: 68 kg

DRUGS (11)
  1. SUNITINIB MALATE [Suspect]
     Indication: METASTATIC RENAL CELL CARCINOMA
     Dosage: 50 MG, 1X/DAY
     Route: 048
     Dates: start: 20060629
  2. ALPRAZOLAM [Concomitant]
     Dosage: UNK
     Route: 048
     Dates: start: 20060613
  3. ENOXAPARIN SODIUM [Concomitant]
     Dosage: UNK
     Route: 058
     Dates: start: 20060626, end: 20060707
  4. CARBAMAZEPINE [Concomitant]
     Dosage: UNK
     Route: 048
     Dates: start: 20060613
  5. METOCLOPRAMIDE [Concomitant]
     Dosage: UNK
     Route: 048
     Dates: start: 20060626, end: 20060628
  6. LACTULOSE [Concomitant]
     Dosage: UNK
     Route: 048
     Dates: start: 20060703
  7. CLODRONATE DISODIUM [Concomitant]
     Dosage: UNK
     Route: 048
     Dates: start: 20060626
  8. CALCITONIN [Concomitant]
     Dosage: UNK
     Route: 048
     Dates: start: 20060626
  9. SYNTOPHYLLIN [Concomitant]
     Dosage: UNK
     Route: 048
  10. NIMESULIDE [Concomitant]
     Dosage: UNK
     Route: 048
     Dates: start: 20060501
  11. I.V. SOLUTIONS [Concomitant]
     Dosage: UNK
     Route: 042
     Dates: start: 20060626

REACTIONS (1)
  - CANDIDIASIS [None]
